FAERS Safety Report 26052971 (Version 1)
Quarter: 2025Q4

REPORT INFORMATION
  Report Type: Spontaneous
  Country: US (occurrence: None)
  Receive Date: 20251114
  Receipt Date: 20251114
  Transmission Date: 20260118
  Serious: Yes (Other)
  Sender: FDA-CTU
  Company Number: None

PATIENT
  Age: 32 Year
  Sex: Female
  Weight: 96.75 kg

DRUGS (1)
  1. IMCIVREE [Suspect]
     Active Substance: SETMELANOTIDE

REACTIONS (3)
  - Mood altered [None]
  - Depression [None]
  - Emotional disorder [None]
